FAERS Safety Report 5380448-1 (Version None)
Quarter: 2007Q3

REPORT INFORMATION
  Report Type: 
  Country: None (occurrence: None)
  Receive Date: 20070706
  Receipt Date: 20070626
  Transmission Date: 20080115
  Serious: Yes (Hospitalization, Other)
  Sender: FDA-Public Use
  Company Number: US-ROCHE-494047

PATIENT
  Age: 15 Year
  Sex: Male
  Weight: 76.2 kg

DRUGS (1)
  1. ACCUTANE [Suspect]
     Route: 065
     Dates: start: 19891019, end: 19900111

REACTIONS (14)
  - ASCITES [None]
  - COLITIS [None]
  - COLITIS ULCERATIVE [None]
  - COLONIC POLYP [None]
  - DUODENAL ULCER [None]
  - EMOTIONAL DISTRESS [None]
  - HAEMORRHAGE [None]
  - ILEUS [None]
  - INFLAMMATORY BOWEL DISEASE [None]
  - IRRITABLE BOWEL SYNDROME [None]
  - PELVIC ABSCESS [None]
  - POUCHITIS [None]
  - PROCTITIS [None]
  - SMALL INTESTINAL OBSTRUCTION [None]
